FAERS Safety Report 5971784-6 (Version None)
Quarter: 2008Q4

REPORT INFORMATION
  Report Type: 
  Country: None (occurrence: None)
  Receive Date: 20081201
  Receipt Date: 20081114
  Transmission Date: 20090506
  Serious: Yes (Hospitalization)
  Sender: FDA-Public Use
  Company Number: US-BAYER-200814593BCC

PATIENT
  Age: 92 Year
  Sex: Female
  Weight: 73 kg

DRUGS (3)
  1. PHILLIPS' MILK OF MAGNESIA CHERRY [Suspect]
     Indication: CONSTIPATION
     Dates: start: 20080801, end: 20081001
  2. SYNTHROID [Concomitant]
  3. NEXIUM [Concomitant]

REACTIONS (3)
  - ABDOMINAL PAIN UPPER [None]
  - NAUSEA [None]
  - VOMITING [None]
